FAERS Safety Report 9611098 (Version 1)
Quarter: 2013Q4

REPORT INFORMATION
  Report Type: Report from Study
  Country: JP (occurrence: JP)
  Receive Date: 20131009
  Receipt Date: 20131009
  Transmission Date: 20140711
  Serious: Yes (Life-Threatening, Hospitalization, Other)
  Sender: FDA-Public Use
  Company Number: JP-TAKEDA-TCI2013A06009

PATIENT
  Age: 73 Year
  Sex: Female

DRUGS (9)
  1. PIOGLITAZONE, METFORMIN [Suspect]
     Indication: TYPE 2 DIABETES MELLITUS
     Dosage: 1 DF, QD
     Route: 048
     Dates: start: 20120714
  2. NESINA TABLET 25MG [Concomitant]
     Dosage: 25 MG, QD
     Route: 048
  3. TAKEPRON OD TABLETS 15 [Concomitant]
     Dosage: 15 MG, QD
     Route: 048
     Dates: start: 20130513
  4. SEIBULE [Concomitant]
     Indication: TYPE 2 DIABETES MELLITUS
     Dosage: 150 MG, UNK
     Route: 048
  5. CALBLOCK [Concomitant]
     Dosage: 16 MG, UNK
     Route: 048
  6. NATRIX [Concomitant]
     Dosage: 0.5 MG, UNK
     Route: 048
     Dates: start: 20130624
  7. REZALTAS HD [Concomitant]
     Dosage: 1 DF, UNK
     Route: 048
     Dates: start: 20130624
  8. SIMVASTATIN [Concomitant]
     Dosage: 5 MG, UNK
     Route: 048
  9. VITAMIN D AND ANALOGUES [Concomitant]
     Dosage: 0.75 ?G, UNK
     Route: 048

REACTIONS (1)
  - Breast cancer [Recovering/Resolving]
